FAERS Safety Report 23358163 (Version 3)
Quarter: 2024Q1

REPORT INFORMATION
  Report Type: Report from Study
  Country: US (occurrence: US)
  Receive Date: 20240102
  Receipt Date: 20240206
  Transmission Date: 20240410
  Serious: Yes (Death)
  Sender: FDA-Public Use
  Company Number: US-BAUSCH-BL-2023-019385

PATIENT
  Age: 71 Year
  Sex: Male

DRUGS (2)
  1. XIFAXAN [Suspect]
     Active Substance: RIFAXIMIN
     Indication: Confusional state
     Route: 048
     Dates: start: 2023
  2. XIFAXAN [Suspect]
     Active Substance: RIFAXIMIN
     Indication: Liver disorder

REACTIONS (1)
  - Hepatic cirrhosis [Fatal]
